FAERS Safety Report 23200078 (Version 1)
Quarter: 2023Q4

REPORT INFORMATION
  Report Type: Spontaneous
  Country: US (occurrence: US)
  Receive Date: 20231117
  Receipt Date: 20231117
  Transmission Date: 20240110
  Serious: No
  Sender: FDA-Public Use
  Company Number: US-ABBVIE-5499406

PATIENT
  Age: 76 Year
  Sex: Female

DRUGS (1)
  1. GELNIQUE [Suspect]
     Active Substance: OXYBUTYNIN
     Indication: Product used for unknown indication
     Dosage: 10 %
     Route: 065
     Dates: end: 2023

REACTIONS (4)
  - Withdrawal syndrome [Unknown]
  - Hyperhidrosis [Unknown]
  - Hot flush [Unknown]
  - Product packaging quantity issue [Unknown]

NARRATIVE: CASE EVENT DATE: 20230101
